FAERS Safety Report 8677409 (Version 4)
Quarter: 2013Q1

REPORT INFORMATION
  Report Type: Spontaneous
  Country: BR (occurrence: BR)
  Receive Date: 20120723
  Receipt Date: 20130221
  Transmission Date: 20140127
  Serious: Yes (Hospitalization, Other)
  Sender: FDA-Public Use
  Company Number: PHHY2012BR062619

PATIENT
  Sex: Female

DRUGS (7)
  1. DIOVAN AMLO FIX [Suspect]
     Indication: HYPERTENSION
     Dosage: 1 DF (VALS 320 MG, AMLO 05 MG), UNK
  2. DIOVAN AMLO FIX [Suspect]
     Dosage: 1 DF (VALS 320 MG, AMLO 10 MG), DAILY
     Route: 048
  3. NEBILET [Concomitant]
     Indication: HYPERTENSION
     Dosage: 1 DF, DAILY
     Route: 048
  4. SUSTRATE [Concomitant]
     Indication: VASOCONSTRICTION
     Dosage: 1 OR 2 DF, DAILY
  5. VENLAFAXINE HYDROCHLORIDE [Concomitant]
     Indication: DEPRESSION
     Dosage: 1 DF, DAILY
     Route: 048
  6. ATENOLOL [Concomitant]
     Indication: HYPERTENSION
     Dosage: 1 DF, DAILY
     Route: 048
  7. PROPRANOLOL [Concomitant]
     Dosage: 1 DF, PRN (WHEN HER HEART WAS GREATLY ACCELERATED)

REACTIONS (15)
  - Cardiac disorder [Unknown]
  - Blood pressure increased [Unknown]
  - Heart valve incompetence [Unknown]
  - Arterial occlusive disease [Unknown]
  - Diabetes mellitus [Recovering/Resolving]
  - Bronchial obstruction [Unknown]
  - Dyspnoea [Not Recovered/Not Resolved]
  - Arrhythmia [Not Recovered/Not Resolved]
  - Gastrointestinal infection [Not Recovered/Not Resolved]
  - Chest pain [Not Recovered/Not Resolved]
  - Hepatic steatosis [Not Recovered/Not Resolved]
  - Blood triglycerides increased [Unknown]
  - Blood pressure decreased [Unknown]
  - Dizziness [Unknown]
  - Heart rate increased [Unknown]
